FAERS Safety Report 13586388 (Version 1)
Quarter: 2017Q2

REPORT INFORMATION
  Report Type: Spontaneous
  Country: US (occurrence: US)
  Receive Date: 20170526
  Receipt Date: 20170526
  Transmission Date: 20170830
  Serious: No
  Sender: FDA-Public Use
  Company Number: US-BAYER-2017-099861

PATIENT
  Age: 65 Year
  Sex: Male
  Weight: 118 kg

DRUGS (2)
  1. ALEVE [Suspect]
     Active Substance: NAPROXEN SODIUM
     Indication: PAIN
     Dosage: 2 DF, QD
     Route: 048
     Dates: start: 2014, end: 20170524
  2. PAIN STOPPER EXTRA [Suspect]
     Active Substance: ACETAMINOPHEN\ASPIRIN\CAFFEINE\SALICYLAMIDE
     Indication: PAIN
     Dosage: UNK A COUPLE EVERY FEW HOURS
     Route: 048
     Dates: start: 2017

REACTIONS (6)
  - Incorrect drug administration duration [Unknown]
  - Incorrect drug administration duration [None]
  - Drug ineffective [Unknown]
  - Abdominal discomfort [None]
  - Off label use [Unknown]
  - Abdominal discomfort [Unknown]
